FAERS Safety Report 6702789-5 (Version None)
Quarter: 2010Q2

REPORT INFORMATION
  Report Type: 
  Country: None (occurrence: None)
  Receive Date: 20100429
  Receipt Date: 20100419
  Transmission Date: 20101027
  Serious: Yes (Hospitalization, Other)
  Sender: FDA-Public Use
  Company Number: US-ELI_LILLY_AND_COMPANY-US201004006844

PATIENT
  Age: 46 Year
  Sex: Male
  Weight: 95.238 kg

DRUGS (1)
  1. EFFIENT [Suspect]
     Dosage: 10 MG, UNK

REACTIONS (1)
  - CARDIAC DISORDER [None]
